FAERS Safety Report 6267011-5 (Version None)
Quarter: 2009Q3

REPORT INFORMATION
  Report Type: 
  Country: None (occurrence: None)
  Receive Date: 20090710
  Receipt Date: 20090710
  Transmission Date: 20100115
  Serious: Yes (Hospitalization)
  Sender: FDA-Public Use
  Company Number: None

PATIENT
  Sex: Male
  Weight: 62.1428 kg

DRUGS (2)
  1. SORAFENIB [Suspect]
     Indication: PANCREATIC CARCINOMA
     Dosage: 400 MG PO QOD
     Route: 048
     Dates: start: 20081121, end: 20090429
  2. ERLOTINIB [Suspect]
     Indication: PANCREATIC CARCINOMA
     Dosage: 150 MG PO DAILY
     Route: 048
     Dates: start: 20081121, end: 20090504

REACTIONS (4)
  - BLOOD CULTURE POSITIVE [None]
  - CONFUSIONAL STATE [None]
  - CULTURE WOUND POSITIVE [None]
  - PAIN [None]
